FAERS Safety Report 22152937 (Version 1)
Quarter: 2023Q1

REPORT INFORMATION
  Report Type: Spontaneous
  Country: US (occurrence: US)
  Receive Date: 20230329
  Receipt Date: 20230329
  Transmission Date: 20230417
  Serious: No
  Sender: FDA-Public Use
  Company Number: US-Prasco Laboratories-PRAS20230087

PATIENT
  Age: 60 Year
  Sex: Female

DRUGS (1)
  1. ESTRADIOL [Suspect]
     Active Substance: ESTRADIOL
     Indication: Off label use
     Dosage: ONE GRAM, DAILY
     Route: 067
     Dates: start: 20230323, end: 20230327

REACTIONS (3)
  - Vaginal discharge [Recovered/Resolved]
  - Abdominal distension [Recovering/Resolving]
  - Off label use [None]

NARRATIVE: CASE EVENT DATE: 20230323
